FAERS Safety Report 8156293-0 (Version None)
Quarter: 2012Q1

REPORT INFORMATION
  Report Type: 
  Country: None (occurrence: None)
  Receive Date: 20120221
  Receipt Date: 20120221
  Transmission Date: 20120608
  Serious: Yes (Other)
  Sender: FDA-Public Use
  Company Number: None

PATIENT
  Sex: Male

DRUGS (8)
  1. REBETOL [Suspect]
     Indication: HEPATITIS C
     Dosage: 200MG CAPSULES 3 CAPS. AM 3 CAPS. PM ORAL
     Route: 048
     Dates: start: 20111027, end: 20120220
  2. ACETAMINOPHEN [Concomitant]
  3. METFORMIN HCL [Concomitant]
  4. PEGASYS [Suspect]
     Indication: HEPATITIS C
     Dosage: 180 MCG 1 X PER WEEK SUBCUTANEOUS INJECTION
     Route: 057
     Dates: start: 20111027, end: 20120220
  5. ASPIRIN [Concomitant]
  6. GLIPIZIDE [Concomitant]
  7. LISINOPRIL [Concomitant]
  8. VICTRELIS [Concomitant]

REACTIONS (1)
  - TREATMENT FAILURE [None]
